FAERS Safety Report 5298709-3 (Version None)
Quarter: 2007Q2

REPORT INFORMATION
  Report Type: 
  Country: None (occurrence: None)
  Receive Date: 20070417
  Receipt Date: 20070411
  Transmission Date: 20071010
  Serious: Yes (Other)
  Sender: FDA-Public Use
  Company Number: 2007UW07163

PATIENT
  Age: 85 Year
  Sex: Male
  Weight: 74.8 kg

DRUGS (6)
  1. TOPROL-XL [Suspect]
     Indication: ATRIAL FIBRILLATION
     Route: 048
     Dates: start: 20060701
  2. TOPROL-XL [Suspect]
     Route: 048
     Dates: start: 20070201
  3. COUMADIN [Concomitant]
  4. SYNTHROID [Concomitant]
  5. LOTENSIN [Concomitant]
  6. PROSCAR [Concomitant]

REACTIONS (13)
  - ABNORMAL DREAMS [None]
  - DIZZINESS [None]
  - DRY EYE [None]
  - EYE PAIN [None]
  - FATIGUE [None]
  - HYPOAESTHESIA [None]
  - INSOMNIA [None]
  - MIGRAINE [None]
  - PERIPHERAL COLDNESS [None]
  - PHARYNGOLARYNGEAL PAIN [None]
  - SOMNOLENCE [None]
  - VISION BLURRED [None]
  - VITREOUS FLOATERS [None]
